FAERS Safety Report 6368514-5 (Version None)
Quarter: 2009Q3

REPORT INFORMATION
  Report Type: 
  Country: None (occurrence: None)
  Receive Date: 20090922
  Receipt Date: 20090915
  Transmission Date: 20100115
  Serious: Yes (Hospitalization)
  Sender: FDA-Public Use
  Company Number: B0593317A

PATIENT
  Sex: Female

DRUGS (9)
  1. AUGMENTIN [Suspect]
     Indication: LUNG INFECTION
     Dosage: 1G THREE TIMES PER DAY
     Route: 048
     Dates: start: 20090725, end: 20090807
  2. PREVISCAN [Suspect]
     Indication: PULMONARY EMBOLISM
     Dosage: 5MG PER DAY
     Route: 048
     Dates: start: 20000101, end: 20090731
  3. FLAGYL [Suspect]
     Indication: LUNG INFECTION
     Route: 048
     Dates: start: 20090729, end: 20090807
  4. CITALOPRAM HYDROBROMIDE [Concomitant]
     Dosage: 10MG IN THE MORNING
     Route: 065
  5. COVERSYL [Concomitant]
     Dosage: 5MG IN THE MORNING
     Route: 065
  6. EXELON [Concomitant]
     Dosage: 1PAT PER DAY
     Route: 023
  7. CLINUTREN [Concomitant]
     Dosage: 1UNIT THREE TIMES PER DAY
     Route: 065
  8. G5% PLASMALYTE [Concomitant]
     Route: 065
  9. SODIUM CHLORIDE [Concomitant]
     Route: 065

REACTIONS (5)
  - DRUG INTERACTION [None]
  - HAEMORRHAGIC ANAEMIA [None]
  - INTERNATIONAL NORMALISED RATIO INCREASED [None]
  - MUSCLE HAEMORRHAGE [None]
  - PROTHROMBIN LEVEL DECREASED [None]
